FAERS Safety Report 6862848-3 (Version None)
Quarter: 2010Q3

REPORT INFORMATION
  Report Type: 
  Country: None (occurrence: None)
  Receive Date: 20100721
  Receipt Date: 20100716
  Transmission Date: 20110219
  Serious: Yes (Hospitalization)
  Sender: FDA-Public Use
  Company Number: A0870830A

PATIENT
  Age: 74 Year
  Sex: Female

DRUGS (14)
  1. ADVAIR DISKUS 100/50 [Suspect]
     Indication: ASTHMA
     Dosage: 1PUFF TWICE PER DAY
     Route: 055
     Dates: start: 20100301, end: 20100715
  2. ADVAIR DISKUS 100/50 [Suspect]
     Dosage: 1PUFF TWICE PER DAY
     Route: 055
     Dates: start: 20080101, end: 20100201
  3. OXYGEN [Suspect]
  4. COMBIVENT [Concomitant]
  5. SPIRIVA [Concomitant]
  6. ATIVAN [Concomitant]
  7. NEBULIZER [Concomitant]
  8. ASPIRIN [Concomitant]
  9. METHIMAZOLE [Concomitant]
  10. SIMVASTATIN [Concomitant]
  11. SERTRALINE HCL [Concomitant]
  12. IBUPROFEN [Concomitant]
     Dosage: 800MG UNKNOWN
  13. OMEPRAZOLE [Concomitant]
  14. VICODIN [Concomitant]

REACTIONS (7)
  - DYSPNOEA [None]
  - HEADACHE [None]
  - LYMPHADENOPATHY [None]
  - NASAL DISCOMFORT [None]
  - SENSATION OF FOREIGN BODY [None]
  - THROAT IRRITATION [None]
  - TREMOR [None]
